FAERS Safety Report 4610130-7 (Version None)
Quarter: 2005Q1

REPORT INFORMATION
  Report Type: 
  Country: None (occurrence: None)
  Receive Date: 20050316
  Receipt Date: 20050303
  Transmission Date: 20050727
  Serious: Yes (Hospitalization)
  Sender: FDA-Public Use
  Company Number: FI-JNJFOC-20050300646

PATIENT
  Age: 55 Year
  Sex: Male

DRUGS (6)
  1. RISPERDAL [Suspect]
     Indication: AGGRESSION
     Route: 049
     Dates: start: 20020723
  2. KEPPRA [Concomitant]
     Indication: EPILEPSY
     Route: 049
  3. LAMICTAL [Concomitant]
     Indication: EPILEPSY
     Route: 049
  4. ABSENOR [Concomitant]
     Indication: EPILEPSY
     Route: 049
  5. LANSOPRAZOLE [Concomitant]
     Indication: GASTROINTESTINAL DISORDER THERAPY
     Route: 049
  6. PRO-EPANUTIN [Concomitant]
     Indication: EPILEPSY
     Route: 042

REACTIONS (3)
  - BRADYCARDIA [None]
  - ELECTROCARDIOGRAM PQ INTERVAL PROLONGED [None]
  - ELECTROCARDIOGRAM QT PROLONGED [None]
